FAERS Safety Report 6138549-6 (Version None)
Quarter: 2009Q1

REPORT INFORMATION
  Report Type: 
  Country: None (occurrence: None)
  Receive Date: 20090331
  Receipt Date: 20090130
  Transmission Date: 20090719
  Serious: Yes (Death)
  Sender: FDA-Public Use
  Company Number: US-TYCO HEALTHCARE/MALLINCKRODT-T200900528

PATIENT
  Age: 22 Year
  Sex: Female

DRUGS (4)
  1. METHYLIN [Suspect]
     Route: 048
  2. EPHEDRA [Suspect]
     Route: 048
  3. ETHANOL [Suspect]
     Route: 048
  4. VALERIAAN                          /01561606/ [Suspect]
     Route: 048

REACTIONS (1)
  - COMPLETED SUICIDE [None]
